FAERS Safety Report 8997555 (Version 2)
Quarter: 2013Q1

REPORT INFORMATION
  Report Type: Report from Study
  Country: US (occurrence: US)
  Receive Date: 20130104
  Receipt Date: 20130302
  Transmission Date: 20140127
  Serious: Yes (Hospitalization, Other)
  Sender: FDA-Public Use
  Company Number: US-US-EMD SERONO, INC.-7184809

PATIENT
  Age: 79 None
  Sex: Male
  Weight: 80 kg

DRUGS (5)
  1. SEROSTIM [(SOMATROPIN (RDNA ORIGIN) FOR INJECTION)] [Suspect]
     Indication: CACHEXIA
     Route: 058
  2. PRADAXA [Concomitant]
     Indication: ATRIAL FIBRILLATION
  3. TRUVADA [Concomitant]
     Indication: PRODUCT USED FOR UNKNOWN INDICATION
  4. ISENTRESS [Concomitant]
     Indication: PRODUCT USED FOR UNKNOWN INDICATION
  5. TESTIM [Concomitant]
     Indication: PRODUCT USED FOR UNKNOWN INDICATION

REACTIONS (9)
  - Hyperkeratosis [Recovering/Resolving]
  - Post procedural infection [Recovering/Resolving]
  - Cellulitis [Recovering/Resolving]
  - Osteomyelitis [Recovering/Resolving]
  - Poor quality sleep [Unknown]
  - Prostatomegaly [Unknown]
  - Stress [Unknown]
  - Upper respiratory tract infection [Recovering/Resolving]
  - Musculoskeletal pain [Recovering/Resolving]
